FAERS Safety Report 4639070-4 (Version None)
Quarter: 2005Q2

REPORT INFORMATION
  Report Type: 
  Country: None (occurrence: None)
  Receive Date: 20050419
  Receipt Date: 20050408
  Transmission Date: 20051028
  Serious: Yes (Hospitalization)
  Sender: FDA-Public Use
  Company Number: US-JNJFOC-20050402884

PATIENT
  Sex: Female
  Weight: 58.06 kg

DRUGS (8)
  1. DURAGESIC-100 [Suspect]
     Route: 062
     Dates: start: 20041001
  2. NEURONTIN [Concomitant]
     Indication: NEUROPATHY
     Route: 049
     Dates: start: 20020101
  3. TRILEPTAL [Concomitant]
     Indication: NEUROPATHY
     Route: 049
     Dates: start: 20040101
  4. CYMBALTA [Concomitant]
     Indication: NEUROPATHY
     Dosage: DULOXETINE HCI
     Route: 049
     Dates: start: 20050201
  5. PROTONIX [Concomitant]
     Route: 049
     Dates: start: 20041101
  6. ESTROGEN [Concomitant]
     Indication: MENOPAUSE
     Route: 049
     Dates: start: 19920101
  7. ARICEPT [Concomitant]
     Route: 049
     Dates: start: 20040101
  8. CATAPRES-TTS-1 [Concomitant]
     Indication: HYPERTENSION
     Route: 062

REACTIONS (2)
  - DIVERTICULITIS [None]
  - GASTROOESOPHAGEAL REFLUX DISEASE [None]
